FAERS Safety Report 5685031-6 (Version None)
Quarter: 2008Q1

REPORT INFORMATION
  Report Type: 
  Country: None (occurrence: None)
  Receive Date: 20080328
  Receipt Date: 19980602
  Transmission Date: 20080703
  Serious: Yes (Death, Hospitalization)
  Sender: FDA-Public Use
  Company Number: DE-ROCHE-100254

PATIENT
  Age: 67 Year
  Sex: Female

DRUGS (1)
  1. TICLOPIDINE HCL [Suspect]
     Indication: DRUG USE FOR UNKNOWN INDICATION
     Route: 048
     Dates: start: 19980401, end: 19980501

REACTIONS (2)
  - DEATH [None]
  - THROMBOTIC THROMBOCYTOPENIC PURPURA [None]
